FAERS Safety Report 4771073-1 (Version None)
Quarter: 2005Q3

REPORT INFORMATION
  Report Type: 
  Country: None (occurrence: None)
  Receive Date: 20050915
  Receipt Date: 20050907
  Transmission Date: 20060218
  Serious: Yes (Other)
  Sender: FDA-Public Use
  Company Number: PHEH2005US09920

PATIENT
  Age: 51 Year
  Sex: Female

DRUGS (1)
  1. ZOLEDRONATE [Suspect]
     Indication: METASTASES TO BONE
     Dosage: UNK, MONTHLY
     Dates: start: 20040101, end: 20050601

REACTIONS (5)
  - DRUG INEFFECTIVE [None]
  - PAIN IN JAW [None]
  - TOOTH EXTRACTION [None]
  - TRISMUS [None]
  - WEIGHT DECREASED [None]
